FAERS Safety Report 19722131 (Version 1)
Quarter: 2021Q3

REPORT INFORMATION
  Report Type: Report from Study
  Country: IE (occurrence: IE)
  Receive Date: 20210819
  Receipt Date: 20210819
  Transmission Date: 20211014
  Serious: Yes (Hospitalization)
  Sender: FDA-Public Use
  Company Number: IE-PFIZER INC-202101043646

PATIENT
  Weight: 37.5 kg

DRUGS (14)
  1. NORETHISTERONE [Concomitant]
     Active Substance: NORETHINDRONE
     Dosage: 5 MG, 3X/DAY (EVERY 8 HOURS)
     Dates: start: 20210722
  2. CYCLIZINE [Concomitant]
     Active Substance: CYCLIZINE
     Indication: NAUSEA
     Dosage: 50 MG, 3X/DAY (OTHER) (EVERY 8 HOURS)
     Dates: start: 20210720
  3. ONDANSETRON [Concomitant]
     Active Substance: ONDANSETRON
     Indication: ANTIEMETIC SUPPORTIVE CARE
     Dosage: 6 MG, 3X/DAY (EVERY 8 HRS)
     Dates: start: 20210718
  4. ORAMORPH SR SUSTAINED RELEASE [Concomitant]
     Active Substance: MORPHINE SULFATE
     Indication: PAIN
     Dosage: 7.5 MG (OTHER) (EVERY 4?6 HOURS)
     Dates: start: 20210718, end: 20210730
  5. AMBISOME [Concomitant]
     Active Substance: AMPHOTERICIN B
     Indication: ANTIFUNGAL TREATMENT
     Dosage: 38 MG, (OTHER) (MON,WED,FRI)
     Dates: start: 20210720, end: 20210730
  6. MOVICOL [Concomitant]
     Active Substance: POLYETHYLENE GLYCOL 3350\POTASSIUM CHLORIDE\SODIUM BICARBONATE\SODIUM CHLORIDE
     Indication: LAXATIVE SUPPORTIVE CARE
     Dosage: UNK, 2X/DAY (1?2 TABLETS)
     Dates: start: 20210721
  7. CYCLIZINE [Concomitant]
     Active Substance: CYCLIZINE
     Dosage: 25 MG, 3X/DAY (OTHER) (EVERY 8 HOURS)
     Dates: start: 20210721, end: 20210725
  8. CYTARABINE. [Suspect]
     Active Substance: CYTARABINE
     Indication: ACUTE MYELOID LEUKAEMIA
     Dosage: 130 MG, 1X/DAY
     Route: 042
     Dates: start: 20210720, end: 20210729
  9. GEMTUZUMAB OZOGAMICIN [Suspect]
     Active Substance: GEMTUZUMAB OZOGAMICIN
     Indication: ACUTE MYELOID LEUKAEMIA
     Dosage: 3.8 MG (OTHER)
     Route: 042
     Dates: start: 20210723, end: 20210723
  10. METHYLPHENIDATE. [Concomitant]
     Active Substance: METHYLPHENIDATE
     Indication: ATTENTION DEFICIT HYPERACTIVITY DISORDER
     Dosage: 30 MG, 1X/DAY (OTHER) (EVERY 24 HRS)
     Dates: start: 20210718
  11. SENNA [SENNOSIDE A+B] [Concomitant]
     Active Substance: SENNOSIDES A AND B
     Indication: LAXATIVE SUPPORTIVE CARE
     Dosage: 2 DF, 1X/DAY (2 TABLETS)
     Dates: start: 20210723
  12. COTRIMOXAZOLE [Concomitant]
     Active Substance: SULFAMETHOXAZOLE\TRIMETHOPRIM
     Indication: ANTIFUNGAL PROPHYLAXIS
     Dosage: 480 MG (OTHER) (SAT,SUN)
     Dates: start: 20210724
  13. MITOXANTRONE HCL [Suspect]
     Active Substance: MITOXANTRONE HYDROCHLORIDE
     Indication: ACUTE MYELOID LEUKAEMIA
     Dosage: 15.2 MG/M2, 1X/DAY
     Route: 042
     Dates: start: 20210720, end: 20210723
  14. PARACETAMOL [Concomitant]
     Active Substance: ACETAMINOPHEN
     Indication: PAIN
     Dosage: 570 MG (OTHER) (EVERY 4?6 HRS)
     Dates: start: 20210718, end: 20210723

REACTIONS (1)
  - Febrile neutropenia [Not Recovered/Not Resolved]

NARRATIVE: CASE EVENT DATE: 20210807
